FAERS Safety Report 8012820-5 (Version None)
Quarter: 2011Q4

REPORT INFORMATION
  Report Type: 
  Country: None (occurrence: None)
  Receive Date: 20111229
  Receipt Date: 20111223
  Transmission Date: 20120403
  Serious: Yes (Death, Hospitalization)
  Sender: FDA-Public Use
  Company Number: ES-BRISTOL-MYERS SQUIBB COMPANY-15421746

PATIENT
  Age: 73 Year
  Sex: Male

DRUGS (17)
  1. DEXAMETHASONE [Concomitant]
     Indication: PROPHYLAXIS
     Dates: start: 20100711, end: 20100823
  2. ATROVENT [Concomitant]
  3. VITAMIN B6 [Concomitant]
  4. FOLIC ACID [Concomitant]
     Indication: PROPHYLAXIS
     Dates: start: 20100701
  5. VENTOLIN [Concomitant]
  6. INSULIN [Concomitant]
  7. CISPLATIN [Suspect]
     Indication: NON-SMALL CELL LUNG CANCER STAGE III
     Dosage: LAST INFUS:28AUG10,9NOV10 OFF PROTOCOL
     Route: 042
     Dates: start: 20100712, end: 20100828
  8. PEMETREXED DISODIUM [Suspect]
     Indication: NON-SMALL CELL LUNG CANCER STAGE III
     Dosage: 12JUL-28AUG2010,48 DAYS; 870MG, 29SEP2010-20OCT10,22D.  LAST DOSE:20OCT10 9NOV10 OFF PROTOCOL
     Route: 042
     Dates: start: 20100712, end: 20101020
  9. OMEPRAZOLE [Concomitant]
     Indication: PROPHYLAXIS
     Dates: start: 20100712
  10. VITAMIN B1 TAB [Concomitant]
  11. VITAMIN B-12 [Concomitant]
     Indication: PROPHYLAXIS
     Dates: start: 20100701
  12. ENANTYUM [Concomitant]
     Indication: PAIN
     Dates: start: 20101005, end: 20101017
  13. ENOXAPARIN SODIUM [Concomitant]
     Indication: DEEP VEIN THROMBOSIS
     Dates: start: 20100824
  14. FENTANYL [Concomitant]
     Indication: PAIN
     Dates: start: 20100915
  15. PRIMPERAN TAB [Concomitant]
  16. SOLU-MEDROL [Concomitant]
  17. TIOPRONIN [Concomitant]

REACTIONS (2)
  - PNEUMONITIS [None]
  - RESPIRATORY FAILURE [None]
